FAERS Safety Report 7401429-X (Version None)
Quarter: 2011Q2

REPORT INFORMATION
  Report Type: 
  Country: None (occurrence: None)
  Receive Date: 20110407
  Receipt Date: 20110325
  Transmission Date: 20111010
  Serious: Yes (Hospitalization)
  Sender: FDA-Public Use
  Company Number: FR-MYLANLABS-2011S1006184

PATIENT
  Age: 60 Year
  Sex: Male

DRUGS (7)
  1. FLUOROURACIL [Suspect]
     Dates: start: 20101222, end: 20110106
  2. ZOPHREN [Concomitant]
     Indication: PREMEDICATION
  3. FLUOROURACIL [Suspect]
     Indication: COLORECTAL CANCER METASTATIC
     Route: 042
     Dates: start: 20101222, end: 20110106
  4. ELOXATIN [Suspect]
     Indication: COLORECTAL CANCER METASTATIC
     Route: 042
     Dates: start: 20101222, end: 20110105
  5. AVASTIN [Suspect]
     Indication: COLORECTAL CANCER METASTATIC
     Route: 042
     Dates: start: 20101222, end: 20110106
  6. METHYLPREDNISOLONE [Concomitant]
     Indication: PREMEDICATION
  7. CALCIUM FOLINATE [Concomitant]
     Indication: PREMEDICATION

REACTIONS (3)
  - HYPERSENSITIVITY [None]
  - HAPTOGLOBIN DECREASED [None]
  - THROMBOCYTOPENIA [None]
